FAERS Safety Report 8618155-1 (Version None)
Quarter: 2012Q3

REPORT INFORMATION
  Report Type: 
  Country: None (occurrence: None)
  Receive Date: 20120824
  Receipt Date: 20120306
  Transmission Date: 20120928
  Serious: Yes (Hospitalization)
  Sender: FDA-Public Use
  Company Number: US-ASTRAZENECA-2012SE15896

PATIENT
  Age: 47 Year
  Sex: Female

DRUGS (1)
  1. SYMBICORT [Suspect]
     Route: 055

REACTIONS (2)
  - MYCOTIC ALLERGY [None]
  - PNEUMONIA [None]
